FAERS Safety Report 8508424-8 (Version None)
Quarter: 2012Q2

REPORT INFORMATION
  Report Type: 
  Country: None (occurrence: None)
  Receive Date: 20120405
  Receipt Date: 20090223
  Transmission Date: 20120825
  Serious: Yes (Disabling, Other)
  Sender: FDA-Public Use
  Company Number: PHEH2008US11509

PATIENT
  Age: 83 Year
  Sex: Female

DRUGS (4)
  1. LASIX [Concomitant]
  2. RECLAST [Suspect]
     Indication: OSTEOPOROSIS
     Dosage: INFUSION
     Dates: start: 20081103, end: 20081103
  3. CLONIDINE [Concomitant]
  4. POTASSIUM CHLORIDE [Concomitant]

REACTIONS (16)
  - ARTHRALGIA [None]
  - GAIT DISTURBANCE [None]
  - ALOPECIA [None]
  - HYPOAESTHESIA [None]
  - INSOMNIA [None]
  - ATRIAL FIBRILLATION [None]
  - PAIN [None]
  - PRURITUS [None]
  - PALPITATIONS [None]
  - MYALGIA [None]
  - FATIGUE [None]
  - INFLUENZA LIKE ILLNESS [None]
  - VISION BLURRED [None]
  - COUGH [None]
  - BACK PAIN [None]
  - SKIN LESION [None]
